FAERS Safety Report 10252680 (Version 1)
Quarter: 2014Q2

REPORT INFORMATION
  Report Type: Not Available
  Country: DK (occurrence: DK)
  Receive Date: 20140623
  Receipt Date: 20140623
  Transmission Date: 20141212
  Serious: Yes (Life-Threatening, Other)
  Sender: FDA-Public Use
  Company Number: DK-BEH-2014043274

PATIENT
  Age: 51 Year
  Sex: Male

DRUGS (5)
  1. PRIVIGEN [Suspect]
     Indication: GUILLAIN-BARRE SYNDROME
     Dosage: DOSIS: 32 G
     Route: 042
     Dates: start: 20140220, end: 20140225
  2. ENACECOR [Concomitant]
     Dates: start: 20140221
  3. GABAPENTIN [Concomitant]
  4. INNOHEP [Concomitant]
     Dates: start: 20140221
  5. ENACECOR [Concomitant]
     Dates: start: 20140221

REACTIONS (1)
  - Haemolytic anaemia [Recovering/Resolving]
